FAERS Safety Report 20951975 (Version 6)
Quarter: 2022Q3

REPORT INFORMATION
  Report Type: Report from Study
  Country: CO (occurrence: CO)
  Receive Date: 20220613
  Receipt Date: 20220912
  Transmission Date: 20221026
  Serious: Yes (Hospitalization, Other)
  Sender: FDA-Public Use
  Company Number: CO-NOVARTISPH-NVSC2022CO133453

PATIENT
  Sex: Female
  Weight: 62 kg

DRUGS (4)
  1. ILARIS [Suspect]
     Active Substance: CANAKINUMAB
     Indication: Still^s disease
     Dosage: 150 MG, QMO
     Route: 058
  2. ILARIS [Suspect]
     Active Substance: CANAKINUMAB
     Dosage: UNK
     Route: 065
     Dates: start: 202205
  3. ILARIS [Suspect]
     Active Substance: CANAKINUMAB
     Dosage: 300 MG, QMO (2 VIALS)
     Route: 058
  4. LYRICA [Suspect]
     Active Substance: PREGABALIN
     Indication: Product used for unknown indication
     Dosage: UNK
     Route: 065

REACTIONS (12)
  - Arthralgia [Unknown]
  - Hypokinesia [Unknown]
  - Pain [Unknown]
  - Pyrexia [Unknown]
  - Tachycardia [Unknown]
  - Hypertension [Unknown]
  - Seizure [Unknown]
  - Antiphospholipid syndrome [Unknown]
  - Cerebral thrombosis [Unknown]
  - Autoimmune disorder [Unknown]
  - Stevens-Johnson syndrome [Unknown]
  - Drug hypersensitivity [Unknown]
